FAERS Safety Report 4826736-6 (Version None)
Quarter: 2005Q4

REPORT INFORMATION
  Report Type: 
  Country: None (occurrence: None)
  Receive Date: 20051111
  Receipt Date: 20051111
  Transmission Date: 20060501
  Serious: No
  Sender: FDA-Public Use
  Company Number: None

PATIENT

DRUGS (1)
  1. DAYPRO [Suspect]
     Dosage: 600MG    2X/DAY   PO
     Route: 048
     Dates: start: 20040210, end: 20040228

REACTIONS (1)
  - OVARIAN DISORDER [None]
